FAERS Safety Report 4624223-1 (Version None)
Quarter: 2005Q1

REPORT INFORMATION
  Report Type: 
  Country: None (occurrence: None)
  Receive Date: 20050330
  Receipt Date: 20050330
  Transmission Date: 20050727
  Serious: Yes (Death)
  Sender: FDA-Public Use
  Company Number: None

PATIENT
  Age: 34 Year
  Sex: Female
  Weight: 91 kg

DRUGS (2)
  1. HYPAQUE [Suspect]
     Indication: VASCULAR GRAFT COMPLICATION
     Dosage: 150 CC
  2. ANCEF [Concomitant]

REACTIONS (8)
  - BLOOD PRESSURE DECREASED [None]
  - BRADYCARDIA [None]
  - CARDIO-RESPIRATORY ARREST [None]
  - DRUG HYPERSENSITIVITY [None]
  - INFUSION SITE REACTION [None]
  - PULMONARY EMBOLISM [None]
  - THROMBOSIS [None]
  - VASCULAR GRAFT COMPLICATION [None]
